FAERS Safety Report 8099826-5 (Version None)
Quarter: 2012Q1

REPORT INFORMATION
  Report Type: 
  Country: None (occurrence: None)
  Receive Date: 20120129
  Receipt Date: 20111007
  Transmission Date: 20120608
  Serious: No
  Sender: FDA-Public Use
  Company Number: US-ABBOTT-11P-163-0862580-00

PATIENT
  Sex: Male
  Weight: 61.744 kg

DRUGS (3)
  1. OMEPRAZOLE [Concomitant]
     Indication: GASTROOESOPHAGEAL REFLUX DISEASE
  2. HUMIRA [Suspect]
     Indication: CROHN'S DISEASE
     Dates: start: 20100401
  3. PENTASA [Concomitant]
     Indication: CROHN'S DISEASE

REACTIONS (8)
  - RASH [None]
  - SKIN IRRITATION [None]
  - ACNE PUSTULAR [None]
  - FATIGUE [None]
  - HOT FLUSH [None]
  - NAUSEA [None]
  - FOLLICULITIS [None]
  - CHILLS [None]
